FAERS Safety Report 5524184-7 (Version None)
Quarter: 2007Q4

REPORT INFORMATION
  Report Type: 
  Country: None (occurrence: None)
  Receive Date: 20071121
  Receipt Date: 20071112
  Transmission Date: 20080405
  Serious: Yes (Hospitalization)
  Sender: FDA-Public Use
  Company Number: GB-PFIZER INC-2007089729

PATIENT
  Sex: Female
  Weight: 77 kg

DRUGS (8)
  1. SUTENT [Suspect]
     Indication: BREAST CANCER METASTATIC
     Dosage: DAILY DOSE:37.5MG-FREQ:1ST CYCLE
     Route: 048
     Dates: start: 20071010, end: 20071020
  2. SUTENT [Suspect]
     Dosage: DAILY DOSE:37.5MG-FREQ:2ND CYCLE
     Route: 048
  3. DOCETAXEL [Suspect]
     Indication: BREAST CANCER METASTATIC
     Dosage: DAILY DOSE:140MG-FREQ:CYCLIC EVERY 3 WEEKS, 1ST CYCLE
     Route: 042
  4. DOCETAXEL [Suspect]
     Dosage: DAILY DOSE:140MG-FREQ:CYCLIC EVERY 3 WEEKS, 2ND CYCLE
     Route: 042
  5. MOVICOL [Concomitant]
     Route: 048
  6. EZETROL [Concomitant]
     Route: 048
  7. METOCLOPRAMIDE [Concomitant]
     Route: 048
     Dates: start: 20071009, end: 20071012
  8. DEXAMETHASONE [Concomitant]
     Route: 048
     Dates: start: 20071008, end: 20071011

REACTIONS (1)
  - NEUTROPENIC SEPSIS [None]
